FAERS Safety Report 7727707-2 (Version None)
Quarter: 2011Q3

REPORT INFORMATION
  Report Type: 
  Country: None (occurrence: None)
  Receive Date: 20110902
  Receipt Date: 20110824
  Transmission Date: 20111222
  Serious: Yes (Hospitalization)
  Sender: FDA-Public Use
  Company Number: FR-ASTRAZENECA-2011SE47927

PATIENT
  Age: 795 Month
  Sex: Male

DRUGS (9)
  1. SUTENT [Suspect]
     Indication: RENAL CANCER METASTATIC
     Route: 048
     Dates: start: 20110623, end: 20110721
  2. NEXIUM [Concomitant]
  3. FORLAX [Concomitant]
  4. CRESTOR [Suspect]
     Indication: DYSLIPIDAEMIA
     Route: 048
     Dates: end: 20110720
  5. LANTUS [Concomitant]
  6. ZOLPIDEM [Concomitant]
  7. CALCIPARINE [Concomitant]
  8. GLUCOPHAGE [Suspect]
     Indication: DIABETES MELLITUS
     Route: 048
     Dates: start: 20100101, end: 20110720
  9. ALFUZOSINE [Concomitant]

REACTIONS (5)
  - THROMBOCYTOPENIA [None]
  - RHABDOMYOLYSIS [None]
  - ASTHENIA [None]
  - NEUTROPENIA [None]
  - MUSCULAR WEAKNESS [None]
